FAERS Safety Report 5953353-7 (Version None)
Quarter: 2008Q4

REPORT INFORMATION
  Report Type: 
  Country: None (occurrence: None)
  Receive Date: 20081114
  Receipt Date: 20081104
  Transmission Date: 20090506
  Serious: Yes (Other)
  Sender: FDA-Public Use
  Company Number: DE-BIOGENIDEC-2008BI029726

PATIENT
  Sex: Female

DRUGS (2)
  1. TYSABRI [Suspect]
     Indication: RELAPSING-REMITTING MULTIPLE SCLEROSIS
     Route: 042
     Dates: end: 20081001
  2. BETAFERON [Concomitant]

REACTIONS (4)
  - INFLUENZA LIKE ILLNESS [None]
  - PARESIS [None]
  - PYREXIA [None]
  - QUADRIPARESIS [None]
